FAERS Safety Report 4882125-X (Version None)
Quarter: 2006Q1

REPORT INFORMATION
  Report Type: 
  Country: None (occurrence: None)
  Receive Date: 20060117
  Receipt Date: 20050921
  Transmission Date: 20060701
  Serious: Yes (Hospitalization, Other)
  Sender: FDA-Public Use
  Company Number: US-MERCK-0509USA03214

PATIENT
  Age: 61 Year
  Sex: Female
  Weight: 91 kg

DRUGS (6)
  1. VIOXX [Suspect]
     Indication: OSTEOARTHRITIS
     Route: 048
     Dates: start: 19990629, end: 20040829
  2. VIOXX [Suspect]
     Route: 048
     Dates: start: 19990629, end: 20040829
  3. VIOXX [Suspect]
     Route: 048
     Dates: start: 19990629, end: 20040829
  4. PAXIL [Concomitant]
     Route: 065
  5. CARDURA [Concomitant]
     Route: 065
  6. TENORMIN [Concomitant]
     Route: 065

REACTIONS (21)
  - ACUTE CORONARY SYNDROME [None]
  - BRONCHITIS [None]
  - CARDIAC FAILURE [None]
  - CARDIAC FAILURE CONGESTIVE [None]
  - CARDIOMEGALY [None]
  - COMMINUTED FRACTURE [None]
  - DEPRESSION [None]
  - DYSPNOEA [None]
  - DYSPNOEA EXERTIONAL [None]
  - EYE DISORDER [None]
  - GASTROENTERITIS [None]
  - HEPATIC STEATOSIS [None]
  - INTERVERTEBRAL DISC DEGENERATION [None]
  - ISCHAEMIC CARDIOMYOPATHY [None]
  - LEFT VENTRICULAR FAILURE [None]
  - MICROLITHIASIS [None]
  - MYOCARDIAL INFARCTION [None]
  - MYOFASCIAL PAIN SYNDROME [None]
  - PANCREATITIS [None]
  - PANCREATITIS ACUTE [None]
  - PERIPHERAL COLDNESS [None]
